FAERS Safety Report 12802326 (Version 1)
Quarter: 2016Q4

REPORT INFORMATION
  Report Type: Spontaneous
  Country: US (occurrence: US)
  Receive Date: 20161003
  Receipt Date: 20161003
  Transmission Date: 20170207
  Serious: No
  Sender: FDA-Public Use
  Company Number: US-JAZZ-2016-US-012398

PATIENT
  Sex: Female

DRUGS (48)
  1. VITAMIN D3 [Concomitant]
     Active Substance: CHOLECALCIFEROL
  2. FISH OIL [Concomitant]
     Active Substance: FISH OIL
  3. VITAMIN B COMPLEX [Concomitant]
     Active Substance: CYANOCOBALAMIN\DEXPANTHENOL\NIACINAMIDE\PYRIDOXINE HYDROCHLORIDE\RIBOFLAVIN 5^-PHOSPHATE SODIUM\THIAMINE HYDROCHLORIDE\VITAMIN B COMPLEX
  4. NORCO [Concomitant]
     Active Substance: ACETAMINOPHEN\HYDROCODONE BITARTRATE
  5. TECFIDERA [Concomitant]
     Active Substance: DIMETHYL FUMARATE
  6. ADDERALL XR [Concomitant]
     Active Substance: AMPHETAMINE ASPARTATE\AMPHETAMINE SULFATE\DEXTROAMPHETAMINE SACCHARATE\DEXTROAMPHETAMINE SULFATE
  7. TEGRETOL XR [Concomitant]
     Active Substance: CARBAMAZEPINE
  8. ZOLOFT [Concomitant]
     Active Substance: SERTRALINE HYDROCHLORIDE
  9. COPAXONE [Concomitant]
     Active Substance: GLATIRAMER ACETATE
  10. ALPRAZOLAM. [Concomitant]
     Active Substance: ALPRAZOLAM
  11. TIZANIDINE HCL [Concomitant]
     Active Substance: TIZANIDINE HYDROCHLORIDE
  12. ZINC GLUCONATE [Concomitant]
     Active Substance: ZINC GLUCONATE
  13. GABAPENTIN. [Concomitant]
     Active Substance: GABAPENTIN
  14. XYREM [Suspect]
     Active Substance: SODIUM OXYBATE
     Dosage: 4.5 G, BID
     Route: 048
     Dates: start: 201406
  15. AUBAGIO [Concomitant]
     Active Substance: TERIFLUNOMIDE
  16. PRILOSEC [Concomitant]
     Active Substance: OMEPRAZOLE MAGNESIUM
  17. AMRIX ER [Concomitant]
  18. XYREM [Suspect]
     Active Substance: SODIUM OXYBATE
     Dosage: 4.5 G, BID
     Route: 048
     Dates: start: 201101, end: 2012
  19. ASPIRIN EC [Concomitant]
     Active Substance: ASPIRIN
  20. KLONOPIN [Concomitant]
     Active Substance: CLONAZEPAM
  21. ZOLPIDEM TARTRATE. [Concomitant]
     Active Substance: ZOLPIDEM TARTRATE
  22. BRINTELLIX [Concomitant]
     Active Substance: VORTIOXETINE HYDROBROMIDE
  23. VIIBRYD [Concomitant]
     Active Substance: VILAZODONE HYDROCHLORIDE
  24. DICLOFENAC SODIUM DR [Concomitant]
     Active Substance: DICLOFENAC SODIUM
  25. LATUDA [Concomitant]
     Active Substance: LURASIDONE HYDROCHLORIDE
  26. PRENATAL [Concomitant]
     Active Substance: VITAMINS
  27. SYNTHROID [Concomitant]
     Active Substance: LEVOTHYROXINE SODIUM
  28. FOLIC ACID. [Concomitant]
     Active Substance: FOLIC ACID
  29. BACLOFEN. [Concomitant]
     Active Substance: BACLOFEN
  30. FLAGYL ER [Concomitant]
     Active Substance: METRONIDAZOLE
  31. XYREM [Suspect]
     Active Substance: SODIUM OXYBATE
     Indication: NARCOLEPSY
     Dosage: 3 G, BID
     Route: 048
     Dates: start: 200703, end: 200705
  32. XYREM [Suspect]
     Active Substance: SODIUM OXYBATE
     Indication: CATAPLEXY
     Dosage: 3.25 G, BID
     Route: 048
     Dates: start: 200705, end: 200804
  33. OXYCODONE HCL IR [Concomitant]
     Active Substance: OXYCODONE HYDROCHLORIDE
  34. PERCOCET [Concomitant]
     Active Substance: ACETAMINOPHEN\OXYCODONE HYDROCHLORIDE
  35. TRAZODONE [Concomitant]
     Active Substance: TRAZODONE HYDROCHLORIDE
  36. POTASSIUM CL ER [Concomitant]
     Active Substance: POTASSIUM CHLORIDE
  37. XYREM [Suspect]
     Active Substance: SODIUM OXYBATE
     Dosage: 4.5 G, BID
     Route: 048
     Dates: start: 200804, end: 2010
  38. XYREM [Suspect]
     Active Substance: SODIUM OXYBATE
     Dosage: 3 G, BID
     Route: 048
     Dates: start: 201012, end: 201101
  39. EQUETRO [Concomitant]
     Active Substance: CARBAMAZEPINE
  40. CRANBERRY CONCENTRATE [Concomitant]
     Active Substance: CRANBERRY CONCENTRATE
  41. CYTOMEL [Concomitant]
     Active Substance: LIOTHYRONINE SODIUM
  42. MAGNESIUM GLUCONATE [Concomitant]
     Active Substance: MAGNESIUM GLUCONATE
  43. NIACIN ER [Concomitant]
     Active Substance: NIACIN
  44. VITAMIN C [Concomitant]
     Active Substance: ASCORBIC ACID
  45. KEPPRA [Concomitant]
     Active Substance: LEVETIRACETAM
  46. SAPHRIS [Concomitant]
     Active Substance: ASENAPINE MALEATE
  47. CALCIUM [Concomitant]
     Active Substance: CALCIUM
  48. FLUCONAZOLE. [Concomitant]
     Active Substance: FLUCONAZOLE

REACTIONS (1)
  - Thyroid disorder [Not Recovered/Not Resolved]
